FAERS Safety Report 15143857 (Version 1)
Quarter: 2018Q3

REPORT INFORMATION
  Report Type: Report from Study
  Country: US (occurrence: US)
  Receive Date: 20180713
  Receipt Date: 20180713
  Transmission Date: 20181010
  Serious: No
  Sender: FDA-Public Use
  Company Number: US-AMGEN-USASL2018094767

PATIENT
  Age: 33 Year
  Sex: Female

DRUGS (2)
  1. ENBREL [Suspect]
     Active Substance: ETANERCEPT
     Indication: PSORIATIC ARTHROPATHY
     Dosage: 50 MG, QWK
     Route: 065
     Dates: start: 201806, end: 2018
  2. ENBREL [Suspect]
     Active Substance: ETANERCEPT
     Dosage: UNK UNK, 2 TIMES/WK
     Route: 065
     Dates: start: 2018

REACTIONS (10)
  - Wrong technique in product usage process [Unknown]
  - Pain [Unknown]
  - Epistaxis [Not Recovered/Not Resolved]
  - Adverse event [Unknown]
  - Fatigue [Unknown]
  - Diarrhoea [Unknown]
  - Myalgia [Not Recovered/Not Resolved]
  - Productive cough [Unknown]
  - Immune system disorder [Unknown]
  - Nasal discomfort [Not Recovered/Not Resolved]

NARRATIVE: CASE EVENT DATE: 2018
